FAERS Safety Report 4869633-2 (Version None)
Quarter: 2005Q4

REPORT INFORMATION
  Report Type: 
  Country: None (occurrence: None)
  Receive Date: 20051227
  Receipt Date: 20051221
  Transmission Date: 20060501
  Serious: Yes (Hospitalization)
  Sender: FDA-Public Use
  Company Number: HQWYE112021DEC05

PATIENT
  Age: 24 Year
  Sex: Male

DRUGS (6)
  1. PANTOPRAZOLE SODIUM [Suspect]
     Dosage: 40 MG 1X PER 1 DAY
     Route: 048
  2. ATARAX [Suspect]
     Dosage: 150 MG 1X PER 1 DAY
     Route: 048
  3. MEPRONIZINE (ACEPROMETAZINE/MEPROBAMATE) [Suspect]
     Dosage: 410 MG 1X PER 1 DAY
     Route: 048
  4. RISPERDAL [Suspect]
     Route: 030
     Dates: start: 20050901
  5. THERALENE (ALIMEMAZINE TARTRATE) [Suspect]
  6. VALIUM [Suspect]
     Dosage: 15 MG 1X PER 1 DAY
     Route: 048

REACTIONS (1)
  - GRAND MAL CONVULSION [None]
